FAERS Safety Report 11646479 (Version 1)
Quarter: 2015Q4

REPORT INFORMATION
  Report Type: Spontaneous
  Country: US (occurrence: US)
  Receive Date: 20151020
  Receipt Date: 20151020
  Transmission Date: 20160304
  Serious: No
  Sender: FDA-Public Use
  Company Number: US-ROCHE-1606481

PATIENT
  Sex: Male

DRUGS (7)
  1. PIRFENIDONE [Suspect]
     Active Substance: PIRFENIDONE
     Indication: IDIOPATHIC PULMONARY FIBROSIS
     Route: 048
     Dates: start: 20150528
  2. MEXILETINE [Concomitant]
     Active Substance: MEXILETINE
  3. DIGOXIN. [Concomitant]
     Active Substance: DIGOXIN
  4. LISINOPRIL. [Concomitant]
     Active Substance: LISINOPRIL
  5. LASIX [Concomitant]
     Active Substance: FUROSEMIDE
  6. CARVEDILOL. [Concomitant]
     Active Substance: CARVEDILOL
  7. PREDNISONE. [Concomitant]
     Active Substance: PREDNISONE

REACTIONS (9)
  - Treatment noncompliance [Unknown]
  - Affective disorder [Unknown]
  - Alopecia [Unknown]
  - Onychoclasis [Unknown]
  - Diarrhoea [Unknown]
  - Dyspepsia [Unknown]
  - Decreased appetite [Unknown]
  - Weight decreased [Unknown]
  - Dyspnoea [Unknown]
